FAERS Safety Report 4974375-9 (Version None)
Quarter: 2006Q2

REPORT INFORMATION
  Report Type: 
  Country: None (occurrence: None)
  Receive Date: 20060410
  Receipt Date: 20060327
  Transmission Date: 20061013
  Serious: Yes (Other)
  Sender: FDA-Public Use
  Company Number: 2006042694

PATIENT
  Age: 79 Year
  Sex: Female

DRUGS (6)
  1. CELEBREX [Suspect]
     Indication: OSTEOPOROSIS
     Dosage: 100 MG (100 MG, 1 IN 1 D)
     Dates: start: 20050101
  2. BEXTRA [Suspect]
     Indication: OSTEOPOROSIS
     Dosage: (1 IN 1 D)
     Dates: end: 20050101
  3. PRILOSEC [Concomitant]
  4. ATENOLOL [Concomitant]
  5. LISINOPRIL [Concomitant]
  6. DYNACIRC [Concomitant]

REACTIONS (4)
  - GASTROINTESTINAL HAEMORRHAGE [None]
  - GASTROOESOPHAGEAL REFLUX DISEASE [None]
  - HAEMOGLOBIN DECREASED [None]
  - OESOPHAGEAL CARCINOMA [None]
